FAERS Safety Report 21839045 (Version 1)
Quarter: 2023Q1

REPORT INFORMATION
  Report Type: Spontaneous
  Country: US (occurrence: None)
  Receive Date: 20230108
  Receipt Date: 20230108
  Transmission Date: 20230418
  Serious: Yes (Hospitalization)
  Sender: FDA-Public Use
  Company Number: None

PATIENT
  Age: 71 Year
  Sex: Male

DRUGS (1)
  1. HYDROCHLOROTHIAZIDE\LISINOPRIL [Suspect]
     Active Substance: HYDROCHLOROTHIAZIDE\LISINOPRIL
     Indication: Hypertension
     Dates: start: 20220916, end: 20221224

REACTIONS (8)
  - Hyponatraemia [None]
  - Hypovolaemia [None]
  - Viral infection [None]
  - Nausea [None]
  - Vomiting [None]
  - Inappropriate antidiuretic hormone secretion [None]
  - Muscle spasms [None]
  - Hypophagia [None]

NARRATIVE: CASE EVENT DATE: 20221224
